FAERS Safety Report 8301214-0 (Version None)
Quarter: 2012Q2

REPORT INFORMATION
  Report Type: 
  Country: None (occurrence: None)
  Receive Date: 20120420
  Receipt Date: 20120420
  Transmission Date: 20120825
  Serious: No
  Sender: FDA-Public Use
  Company Number: None

PATIENT
  Age: 33 Year
  Sex: Female
  Weight: 71.667 kg

DRUGS (1)
  1. CYMBALTA [Suspect]
     Indication: DEPRESSION
     Dosage: 30 MG
     Dates: start: 20111101, end: 20120416

REACTIONS (14)
  - DRUG DEPENDENCE [None]
  - PARANOIA [None]
  - DIARRHOEA [None]
  - CRYING [None]
  - DISTURBANCE IN ATTENTION [None]
  - MEMORY IMPAIRMENT [None]
  - INSOMNIA [None]
  - WITHDRAWAL SYNDROME [None]
  - NAUSEA [None]
  - FATIGUE [None]
  - MOOD SWINGS [None]
  - FEELING ABNORMAL [None]
  - ANGER [None]
  - DIZZINESS [None]
